FAERS Safety Report 6665897-3 (Version None)
Quarter: 2010Q1

REPORT INFORMATION
  Report Type: 
  Country: None (occurrence: None)
  Receive Date: 20100326
  Receipt Date: 20090710
  Transmission Date: 20100710
  Serious: Yes (Other)
  Sender: FDA-Public Use
  Company Number: 2009SU0154

PATIENT
  Age: 78 Year
  Sex: Male
  Weight: 93.441 kg

DRUGS (6)
  1. SULAR [Suspect]
     Indication: HYPERTENSION
     Dosage: 25.5 MG, DAILY8.5 MG, DAILY
     Dates: start: 20090601, end: 20090601
  2. SULAR [Suspect]
     Indication: HYPERTENSION
     Dosage: 25.5 MG, DAILY8.5 MG, DAILY
     Dates: start: 20090601
  3. SULAR [Suspect]
     Indication: HYPERTENSION
     Dates: start: 20090601
  4. METOPROLOL TARTRATE [Concomitant]
  5. LISINOPRIL [Concomitant]
  6. . [Concomitant]

REACTIONS (3)
  - DRUG INEFFECTIVE [None]
  - HYPERTENSION [None]
  - HYPOTENSION [None]
